FAERS Safety Report 8347877-5 (Version None)
Quarter: 2012Q2

REPORT INFORMATION
  Report Type: 
  Country: None (occurrence: None)
  Receive Date: 20120509
  Receipt Date: 20120426
  Transmission Date: 20120825
  Serious: Yes (Death)
  Sender: FDA-Public Use
  Company Number: DE-ELI_LILLY_AND_COMPANY-DE201204009423

PATIENT
  Age: 85 Year
  Sex: Female

DRUGS (8)
  1. FORTEO [Suspect]
     Indication: OSTEOPOROSIS
     Dosage: UNK, QD
     Route: 058
     Dates: start: 20100416
  2. MORPHINE [Concomitant]
  3. BISOPROLOL FUMARATE [Concomitant]
     Indication: HYPERTENSION
  4. VITAMIN D [Concomitant]
  5. ATACAND [Concomitant]
     Indication: HYPERTENSION
  6. PENTAERYTHRITOL TETRANITRATE [Concomitant]
     Indication: HYPERTENSION
  7. CALCIUM [Concomitant]
  8. AQUAPHOR [Concomitant]
     Indication: HYPERTENSION

REACTIONS (3)
  - DYSPNOEA [None]
  - DEPRESSED MOOD [None]
  - CARDIAC DISORDER [None]
